FAERS Safety Report 5480194-X (Version None)
Quarter: 2007Q4

REPORT INFORMATION
  Report Type: 
  Country: None (occurrence: None)
  Receive Date: 20071009
  Receipt Date: 20071001
  Transmission Date: 20080405
  Serious: Yes (Other)
  Sender: FDA-Public Use
  Company Number: US-BAYER-200712968BWH

PATIENT
  Age: 52 Year
  Sex: Male

DRUGS (3)
  1. NEXAVAR [Suspect]
     Indication: HEPATIC NEOPLASM MALIGNANT
     Dosage: TOTAL DAILY DOSE: 400 MG  UNIT DOSE: 200 MG
     Route: 048
     Dates: start: 20070901
  2. NEXAVAR [Suspect]
     Dosage: TOTAL DAILY DOSE: 800 MG  UNIT DOSE: 200 MG
     Route: 048
     Dates: start: 20070801, end: 20070901
  3. CHEMOTHERAPY [Concomitant]
     Route: 042
     Dates: start: 20070201, end: 20070801

REACTIONS (16)
  - ANOREXIA [None]
  - DIARRHOEA [None]
  - DIPLOPIA [None]
  - DRY SKIN [None]
  - EPISTAXIS [None]
  - HYPOAESTHESIA [None]
  - IMPAIRED HEALING [None]
  - NERVOUS SYSTEM DISORDER [None]
  - OEDEMA PERIPHERAL [None]
  - ORAL PAIN [None]
  - PAIN IN EXTREMITY [None]
  - PALMAR-PLANTAR ERYTHRODYSAESTHESIA SYNDROME [None]
  - PARAESTHESIA [None]
  - RASH [None]
  - SKIN EXFOLIATION [None]
  - SKIN FISSURES [None]
